FAERS Safety Report 6819681-8 (Version None)
Quarter: 2010Q2

REPORT INFORMATION
  Report Type: 
  Country: None (occurrence: None)
  Receive Date: 20100630
  Receipt Date: 20100618
  Transmission Date: 20101027
  Serious: Yes (Hospitalization, Other)
  Sender: FDA-Public Use
  Company Number: 2009AC000505

PATIENT
  Age: 70 Year
  Sex: Male

DRUGS (10)
  1. DIGOXIN [Suspect]
     Dosage: UNKNOWN;PO
     Route: 048
     Dates: start: 20080101
  2. DIGOXIN [Suspect]
     Dosage: 0.25 MG;QD;PO
     Route: 048
     Dates: start: 20070601
  3. COUMADIN [Concomitant]
  4. FUROSEMIDE [Concomitant]
  5. POTASSIUM [Concomitant]
  6. LOPRESSOR [Concomitant]
  7. LISINOPRIL [Concomitant]
  8. BUMEX [Concomitant]
  9. NEURONTIN [Concomitant]
  10. POTASSIUM [Concomitant]

REACTIONS (26)
  - ABASIA [None]
  - ARTERIOSCLEROSIS [None]
  - ARTERIOSCLEROSIS CORONARY ARTERY [None]
  - ASTHENIA [None]
  - BLOOD POTASSIUM INCREASED [None]
  - BRADYCARDIA [None]
  - CONSTIPATION [None]
  - DEHYDRATION [None]
  - DIZZINESS [None]
  - ECONOMIC PROBLEM [None]
  - FALL [None]
  - GOUTY ARTHRITIS [None]
  - HEART RATE DECREASED [None]
  - HYPERKALAEMIA [None]
  - HYPERTENSION [None]
  - MULTIPLE INJURIES [None]
  - NEUROPATHY PERIPHERAL [None]
  - PAIN IN EXTREMITY [None]
  - PARTNER STRESS [None]
  - PRESYNCOPE [None]
  - RENAL FAILURE ACUTE [None]
  - RENAL FAILURE CHRONIC [None]
  - RHABDOMYOLYSIS [None]
  - SICK SINUS SYNDROME [None]
  - THERAPEUTIC AGENT TOXICITY [None]
  - WHITE BLOOD CELL COUNT INCREASED [None]
